FAERS Safety Report 4485453-5 (Version None)
Quarter: 2004Q4

REPORT INFORMATION
  Report Type: 
  Country: None (occurrence: None)
  Receive Date: 20041026
  Receipt Date: 20041006
  Transmission Date: 20050328
  Serious: Yes (Other)
  Sender: FDA-Public Use
  Company Number: US-BRISTOL-MYERS SQUIBB COMPANY-12731626

PATIENT
  Age: 14 Year
  Sex: Male
  Weight: 68 kg

DRUGS (2)
  1. ABILIFY [Suspect]
     Indication: IMPULSE-CONTROL DISORDER
     Dosage: INITIATED 5 MG/DAY 19-APR-2004.  INC TO 20 MG/DAY, THEN DISCONTINUED.
     Route: 048
     Dates: start: 20040419, end: 20041005
  2. BENADRYL [Concomitant]

REACTIONS (6)
  - BILIARY DILATATION [None]
  - BLOOD ALKALINE PHOSPHATASE INCREASED [None]
  - BLOOD BILIRUBIN INCREASED [None]
  - LIPASE INCREASED [None]
  - NAUSEA [None]
  - VOMITING [None]
